FAERS Safety Report 5952502-4 (Version None)
Quarter: 2008Q4

REPORT INFORMATION
  Report Type: 
  Country: None (occurrence: None)
  Receive Date: 20081113
  Receipt Date: 20081103
  Transmission Date: 20090506
  Serious: Yes (Hospitalization)
  Sender: FDA-Public Use
  Company Number: BR-PFIZER INC-2008093258

PATIENT
  Sex: Male
  Weight: 68 kg

DRUGS (5)
  1. ZYVOX [Suspect]
     Indication: INFECTION
     Dates: start: 20050101
  2. RIVOTRIL [Concomitant]
  3. AMITRIPTYLINE HCL [Concomitant]
  4. CODEINE SUL TAB [Concomitant]
  5. TRAMADOL HCL [Concomitant]

REACTIONS (1)
  - STAPHYLOCOCCAL INFECTION [None]
